FAERS Safety Report 19152155 (Version 1)
Quarter: 2021Q2

REPORT INFORMATION
  Report Type: Spontaneous
  Country: GB (occurrence: GB)
  Receive Date: 20210419
  Receipt Date: 20210419
  Transmission Date: 20210717
  Serious: Yes (Other)
  Sender: FDA-Public Use
  Company Number: GB-TEVA-2021-GB-1901361

PATIENT
  Age: 39 Year
  Sex: Female
  Weight: 53 kg

DRUGS (1)
  1. LETROZOL [Suspect]
     Active Substance: LETROZOLE
     Indication: ANOVULATORY CYCLE
     Dosage: 2.5
     Route: 048
     Dates: start: 20210317, end: 20210321

REACTIONS (1)
  - Breast cyst [Not Recovered/Not Resolved]
